FAERS Safety Report 8898810 (Version 1)
Quarter: 2012Q4

REPORT INFORMATION
  Report Type: 
  Country: US (occurrence: US)
  Receive Date: 20121108
  Receipt Date: 20121108
  Transmission Date: 20130627
  Serious: No
  Sender: FDA-Public Use
  Company Number: US-AMGEN-USASP2012027953

PATIENT
  Age: 64 Year
  Sex: Female

DRUGS (8)
  1. ENBREL [Suspect]
     Indication: PRODUCT USED FOR UNKNOWN INDICATION
     Dosage: 50 mg, qwk
     Route: 058
     Dates: end: 201201
  2. DIOVAN [Concomitant]
     Dosage: 160 mg, UNK
  3. SULFASALAZINE [Concomitant]
  4. TYLENOL /00020001/ [Concomitant]
  5. PREDNISONE [Concomitant]
     Dosage: 5 mg, UNK
  6. LEVOTHYROXIN [Concomitant]
     Dosage: 100 mug, UNK
  7. CITALOPRAM [Concomitant]
     Dosage: 20 mg, UNK
  8. PRILOSEC                           /00661201/ [Concomitant]
     Dosage: 20 mg, UNK

REACTIONS (1)
  - Skin ulcer [Unknown]
